FAERS Safety Report 5597964-X (Version None)
Quarter: 2008Q1

REPORT INFORMATION
  Report Type: 
  Country: None (occurrence: None)
  Receive Date: 20080116
  Receipt Date: 20080109
  Transmission Date: 20080703
  Serious: Yes (Other)
  Sender: FDA-Public Use
  Company Number: 2008SP000455

PATIENT
  Sex: Male

DRUGS (2)
  1. TEMODAL [Suspect]
     Indication: MALIGNANT GLIOMA
     Dates: start: 20070601, end: 20070901
  2. HEPARIN [Suspect]
     Indication: THROMBOPHLEBITIS
     Dates: start: 20071001, end: 20071101

REACTIONS (1)
  - HEPATOCELLULAR INJURY [None]
